FAERS Safety Report 9775480 (Version 1)
Quarter: 2013Q4

REPORT INFORMATION
  Report Type: Spontaneous
  Country: US (occurrence: US)
  Receive Date: 20131220
  Receipt Date: 20131220
  Transmission Date: 20140711
  Serious: No
  Sender: FDA-Public Use
  Company Number: US-GALDERMA-US13003538

PATIENT
  Sex: 0

DRUGS (1)
  1. MIRVASO [Suspect]
     Dosage: 0.33%
     Route: 061

REACTIONS (2)
  - Condition aggravated [Unknown]
  - Erythema [Unknown]
